FAERS Safety Report 8490461-3 (Version None)
Quarter: 2012Q3

REPORT INFORMATION
  Report Type: 
  Country: None (occurrence: None)
  Receive Date: 20120705
  Receipt Date: 20120621
  Transmission Date: 20120928
  Serious: No
  Sender: FDA-Public Use
  Company Number: US-ASTRAZENECA-2012SE39130

PATIENT
  Age: 52 Year
  Sex: Female

DRUGS (1)
  1. ZOMIG-ZMT [Suspect]
     Route: 048

REACTIONS (4)
  - HORMONE LEVEL ABNORMAL [None]
  - MIGRAINE [None]
  - VOMITING [None]
  - PAIN [None]
